FAERS Safety Report 17856222 (Version 1)
Quarter: 2020Q2

REPORT INFORMATION
  Report Type: Report from Study
  Country: BR (occurrence: BR)
  Receive Date: 20200603
  Receipt Date: 20200603
  Transmission Date: 20200714
  Serious: Yes (Hospitalization)
  Sender: FDA-Public Use
  Company Number: BR-JNJFOC-20200535295

PATIENT
  Sex: Female
  Weight: 30 kg

DRUGS (1)
  1. STELARA [Suspect]
     Active Substance: USTEKINUMAB
     Indication: CROHN^S DISEASE
     Dosage: 1 VIAL
     Route: 058
     Dates: end: 20200427

REACTIONS (2)
  - Drug ineffective [Unknown]
  - Gastrointestinal infection [Recovering/Resolving]
